FAERS Safety Report 7219416-3 (Version None)
Quarter: 2011Q1

REPORT INFORMATION
  Report Type: 
  Country: None (occurrence: None)
  Receive Date: 20110103
  Receipt Date: 20101220
  Transmission Date: 20110831
  Serious: Yes (Other)
  Sender: FDA-Public Use
  Company Number: HA10-309-AE

PATIENT
  Sex: Female

DRUGS (1)
  1. SULFAMETHOXAZOLE AND TRIMETHOPRIM [Suspect]
     Indication: STAPHYLOCOCCAL INFECTION
     Dosage: 1 TABLET, BID, ORAL; 17 TABLETS
     Route: 048
     Dates: start: 20101203

REACTIONS (4)
  - RASH GENERALISED [None]
  - NECK MASS [None]
  - ERYTHEMA [None]
  - LOCAL SWELLING [None]
